FAERS Safety Report 5404442-7 (Version None)
Quarter: 2007Q3

REPORT INFORMATION
  Report Type: 
  Country: None (occurrence: None)
  Receive Date: 20070802
  Receipt Date: 20070723
  Transmission Date: 20080115
  Serious: Yes (Death, Hospitalization, Other)
  Sender: FDA-Public Use
  Company Number: US-PFIZER INC-2007062295

PATIENT
  Sex: Male

DRUGS (5)
  1. LIPITOR [Suspect]
     Indication: BLOOD CHOLESTEROL INCREASED
  2. METOPROLOL SUCCINATE [Concomitant]
  3. HYDROCHLOROTHIAZIDE [Concomitant]
     Dosage: TEXT:50/25
  4. KETOPROFEN [Concomitant]
  5. LODINE [Concomitant]

REACTIONS (8)
  - ADVERSE EVENT [None]
  - FLUID INTAKE REDUCED [None]
  - INSOMNIA [None]
  - MESOTHELIOMA [None]
  - ORAL INTAKE REDUCED [None]
  - PAIN [None]
  - PLEURAL EFFUSION [None]
  - WEIGHT DECREASED [None]
